FAERS Safety Report 11832355 (Version 4)
Quarter: 2016Q2

REPORT INFORMATION
  Report Type: Spontaneous
  Country: US (occurrence: US)
  Receive Date: 20151214
  Receipt Date: 20160523
  Transmission Date: 20160815
  Serious: Yes (Hospitalization, Other)
  Sender: FDA-Public Use
  Company Number: US-ROXANE LABORATORIES, INC.-2015-RO-02069RO

PATIENT
  Age: 57 Year
  Sex: Female
  Weight: 64 kg

DRUGS (14)
  1. FOSAMAX [Concomitant]
     Active Substance: ALENDRONATE SODIUM
     Route: 065
     Dates: start: 20131206
  2. MYCOPHENOLATE MOFETIL. [Suspect]
     Active Substance: MYCOPHENOLATE MOFETIL
     Dosage: 1000 MG
     Route: 048
     Dates: start: 20150106
  3. MYCOPHENOLATE MOFETIL. [Suspect]
     Active Substance: MYCOPHENOLATE MOFETIL
     Dosage: 1500 MG
     Route: 048
     Dates: start: 20141209, end: 20150105
  4. VALCYTE [Suspect]
     Active Substance: VALGANCICLOVIR HYDROCHLORIDE
     Dosage: 450 MG
     Route: 048
     Dates: start: 20150209, end: 20150304
  5. BENADRYL [Concomitant]
     Active Substance: DIPHENHYDRAMINE HYDROCHLORIDE
     Route: 065
     Dates: start: 20131114
  6. PREDNISONE. [Concomitant]
     Active Substance: PREDNISONE
     Route: 065
     Dates: start: 20131108
  7. TYLENOL [Concomitant]
     Active Substance: ACETAMINOPHEN
     Route: 065
     Dates: start: 2012
  8. MYCOPHENOLATE MOFETIL. [Suspect]
     Active Substance: MYCOPHENOLATE MOFETIL
     Indication: RENAL TRANSPLANT
     Dosage: 2000 MG
     Route: 048
     Dates: start: 20131108, end: 20141208
  9. VALCYTE [Suspect]
     Active Substance: VALGANCICLOVIR HYDROCHLORIDE
     Indication: ANTIVIRAL PROPHYLAXIS
     Dosage: 900 MG
     Route: 048
     Dates: start: 20150128, end: 20150208
  10. ASKP1240 [Suspect]
     Active Substance: BLESELUMAB
     Indication: RENAL TRANSPLANT
     Route: 042
     Dates: start: 20131108
  11. VALCYTE [Suspect]
     Active Substance: VALGANCICLOVIR HYDROCHLORIDE
     Indication: CYTOMEGALOVIRUS VIRAEMIA
     Dosage: 1800 MG
     Route: 048
     Dates: start: 20140105, end: 20150127
  12. POTASSIUM CITRATE. [Concomitant]
     Active Substance: POTASSIUM CITRATE
     Route: 065
     Dates: start: 20140509
  13. ACETAMINOPHEN. [Concomitant]
     Active Substance: ACETAMINOPHEN
     Route: 065
     Dates: start: 20131115
  14. BASILIXIMAB [Suspect]
     Active Substance: BASILIXIMAB
     Indication: RENAL TRANSPLANT
     Dosage: 20 MG
     Route: 042
     Dates: start: 20131108, end: 20131112

REACTIONS (4)
  - Urosepsis [Recovered/Resolved]
  - Cytomegalovirus viraemia [Recovered/Resolved]
  - Leukopenia [Recovered/Resolved]
  - BK virus infection [Recovered/Resolved]

NARRATIVE: CASE EVENT DATE: 20141103
